FAERS Safety Report 25252638 (Version 2)
Quarter: 2025Q3

REPORT INFORMATION
  Report Type: Spontaneous
  Country: GB (occurrence: GB)
  Receive Date: 20250429
  Receipt Date: 20250709
  Transmission Date: 20251021
  Serious: Yes (Other)
  Sender: MERCK SHARP & DOHME LLC
  Company Number: GB-009507513-2281111

PATIENT
  Age: 50 Year
  Sex: Male

DRUGS (3)
  1. TEMOZOLOMIDE [Suspect]
     Active Substance: TEMOZOLOMIDE
     Indication: Astrocytoma
     Route: 048
     Dates: start: 2024, end: 20240517
  2. TEMOZOLOMIDE [Suspect]
     Active Substance: TEMOZOLOMIDE
     Indication: Astrocytoma
     Route: 048
     Dates: start: 20240617, end: 2024
  3. TEMOZOLOMIDE [Suspect]
     Active Substance: TEMOZOLOMIDE
     Indication: Astrocytoma
     Route: 048
     Dates: start: 2024, end: 202411

REACTIONS (26)
  - Malignant neoplasm progression [Unknown]
  - Depressed mood [Unknown]
  - Muscular weakness [Unknown]
  - Cerebral cyst [Unknown]
  - Headache [Recovered/Resolved]
  - Back pain [Unknown]
  - Brain oedema [Unknown]
  - Visual impairment [Unknown]
  - Feeling hot [Unknown]
  - Feeling abnormal [Unknown]
  - Anxiety [Unknown]
  - Weight increased [Unknown]
  - Thrombocytopenia [Recovered/Resolved]
  - Dizziness [Unknown]
  - Magnetic resonance imaging head abnormal [Unknown]
  - Dissociation [Unknown]
  - Nausea [Unknown]
  - Increased appetite [Unknown]
  - Headache [Not Recovered/Not Resolved]
  - Vision blurred [Unknown]
  - Muscle spasms [Unknown]
  - Fatigue [Unknown]
  - Eastern Cooperative Oncology Group performance status worsened [Unknown]
  - Thirst [Unknown]
  - Poor quality sleep [Unknown]
  - Stress [Unknown]

NARRATIVE: CASE EVENT DATE: 20240101
